FAERS Safety Report 8164677-X (Version None)
Quarter: 2012Q1

REPORT INFORMATION
  Report Type: 
  Country: None (occurrence: None)
  Receive Date: 20120227
  Receipt Date: 20120217
  Transmission Date: 20120608
  Serious: Yes (Hospitalization)
  Sender: FDA-Public Use
  Company Number: US-BIOGENIDEC-2012BI006593

PATIENT
  Age: 55 Year
  Sex: Female

DRUGS (1)
  1. AVONEX [Suspect]
     Indication: MULTIPLE SCLEROSIS
     Route: 030
     Dates: start: 20050501, end: 20120122

REACTIONS (6)
  - ESCHERICHIA TEST POSITIVE [None]
  - APPENDICITIS [None]
  - INCISION SITE ABSCESS [None]
  - PROCEDURAL PAIN [None]
  - STAPHYLOCOCCAL INFECTION [None]
  - INSOMNIA [None]
